FAERS Safety Report 6641235-7 (Version None)
Quarter: 2010Q1

REPORT INFORMATION
  Report Type: 
  Country: None (occurrence: None)
  Receive Date: 20100303
  Receipt Date: 20090720
  Transmission Date: 20100710
  Serious: Yes (Other)
  Sender: FDA-Public Use
  Company Number: 645199

PATIENT
  Age: 44 Year
  Sex: Female

DRUGS (10)
  1. BONIVA [Suspect]
     Indication: OSTEOPENIA
     Dosage: 3 MG INTRAVENOUS
     Route: 042
     Dates: start: 20080101
  2. PREDNISONE TAB [Concomitant]
  3. AMITRIPTYLINE HYDROCHLORIDE [Concomitant]
  4. GEODON [Concomitant]
  5. FISH OIL (FATTY ACIDS NOS) [Concomitant]
  6. CALCIUM (CALCIUM) [Concomitant]
  7. ASCORBIC ACID [Concomitant]
  8. MAGNESIUM SULFATE [Concomitant]
  9. ZINC (ZINC NOS) [Concomitant]
  10. RESVERATROL (RESVERATROL) [Concomitant]

REACTIONS (4)
  - CELLULITIS [None]
  - DRUG ADMINISTRATION ERROR [None]
  - EXTRAVASATION [None]
  - PAIN IN JAW [None]
